FAERS Safety Report 4288684-2 (Version None)
Quarter: 2004Q1

REPORT INFORMATION
  Report Type: 
  Country: None (occurrence: None)
  Receive Date: 20040209
  Receipt Date: 20040203
  Transmission Date: 20041129
  Serious: Yes (Hospitalization)
  Sender: FDA-Public Use
  Company Number: WAES 0402USA00282

PATIENT
  Age: 17 Year
  Sex: Female

DRUGS (4)
  1. PULMICORT [Concomitant]
  2. ADVAIR DISKUS 100/50 [Concomitant]
  3. SINGULAIR [Suspect]
     Indication: PNEUMONIA
     Route: 048
  4. SINGULAIR [Suspect]
     Indication: ASTHMA
     Route: 048

REACTIONS (1)
  - PSYCHOTIC DISORDER [None]
